FAERS Safety Report 6325996-2 (Version None)
Quarter: 2009Q3

REPORT INFORMATION
  Report Type: 
  Country: None (occurrence: None)
  Receive Date: 20090818
  Receipt Date: 20090420
  Transmission Date: 20100115
  Serious: No
  Sender: FDA-Public Use
  Company Number: WAES 0904USA03202

PATIENT
  Age: 77 Year
  Sex: Female

DRUGS (12)
  1. JANUVIA [Suspect]
     Indication: DIABETES MELLITUS
     Dosage: 100 MG/DAILY/PO
     Route: 048
     Dates: start: 20071101
  2. CELEBREX [Concomitant]
  3. CLARINEX [Concomitant]
  4. NEXIUM [Concomitant]
  5. VICODIN [Concomitant]
  6. ALPRAZOLAM [Concomitant]
  7. GABAPENTIN [Concomitant]
  8. GLIPIZIDE [Concomitant]
  9. MAGNESIUM [Concomitant]
  10. POTASSIUM CHLORIDE [Concomitant]
  11. PRAZSOIN HCL [Concomitant]
  12. WARFARIN [Concomitant]

REACTIONS (1)
  - MEDICATION RESIDUE [None]
